FAERS Safety Report 5910679-0 (Version None)
Quarter: 2008Q4

REPORT INFORMATION
  Report Type: 
  Country: None (occurrence: None)
  Receive Date: 20081007
  Receipt Date: 20080926
  Transmission Date: 20090506
  Serious: No
  Sender: FDA-Public Use
  Company Number: BR-ROCHE-536998

PATIENT

DRUGS (2)
  1. ROACUTAN [Suspect]
     Indication: ACNE
     Dosage: STRENGTH REPORTED: 10 MG
     Dates: start: 20070301, end: 20070501
  2. ROACUTAN [Suspect]
     Dosage: STRENGTH REPORTED: 20 MG. DOSE INCREASED.
     Dates: start: 20070501, end: 20071101

REACTIONS (2)
  - NO ADVERSE EVENT [None]
  - NORMAL NEWBORN [None]
